FAERS Safety Report 15320826 (Version 2)
Quarter: 2018Q3

REPORT INFORMATION
  Report Type: Spontaneous
  Country: US (occurrence: US)
  Receive Date: 20180827
  Receipt Date: 20180915
  Transmission Date: 20181010
  Serious: Yes (Hospitalization, Other)
  Sender: FDA-Public Use
  Company Number: US-AUROBINDO-AUR-APL-2018-042634

PATIENT
  Age: 65 Year
  Sex: Male

DRUGS (11)
  1. METHOTREXATE. [Suspect]
     Active Substance: METHOTREXATE
     Indication: ARTHRITIS
     Dosage: 15 MILLIGRAM, EVERY WEEK
     Route: 065
  2. PREDNISONE. [Suspect]
     Active Substance: PREDNISONE
     Dosage: 15 UNK
     Route: 065
  3. USTEKINUMAB [Suspect]
     Active Substance: USTEKINUMAB
     Indication: PRODUCT USED FOR UNKNOWN INDICATION
     Dosage: 45 MILLIGRAM
     Route: 065
  4. ADALIMUMAB [Suspect]
     Active Substance: ADALIMUMAB
     Indication: PRODUCT USED FOR UNKNOWN INDICATION
     Dosage: 40 MILLIGRAM
     Route: 065
  5. AZATHIOPRINE. [Suspect]
     Active Substance: AZATHIOPRINE
     Indication: PSORIATIC ARTHROPATHY
     Dosage: 50 MILLIGRAM, DAILY
     Route: 065
  6. AZATHIOPRINE. [Suspect]
     Active Substance: AZATHIOPRINE
     Dosage: 125 MILLIGRAM, DAILY
     Route: 065
  7. APREMILAST [Suspect]
     Active Substance: APREMILAST
     Indication: PRODUCT USED FOR UNKNOWN INDICATION
     Dosage: 30 MILLIGRAM
     Route: 065
  8. PREDNISONE. [Suspect]
     Active Substance: PREDNISONE
     Indication: PSORIATIC ARTHROPATHY
     Dosage: 20 MILLIGRAM, DAILY
     Route: 065
  9. ETANERCEPT [Suspect]
     Active Substance: ETANERCEPT
     Indication: PRODUCT USED FOR UNKNOWN INDICATION
     Dosage: 50 MILLIGRAM, EVERY WEEK
     Route: 065
  10. FOLIC ACID. [Suspect]
     Active Substance: FOLIC ACID
     Indication: PRODUCT USED FOR UNKNOWN INDICATION
     Dosage: 3 MILLIGRAM, ONCE A DAY
     Route: 065
  11. METHOTREXATE. [Suspect]
     Active Substance: METHOTREXATE
     Dosage: 7.5 UNK
     Route: 065

REACTIONS (15)
  - White blood cell count decreased [Unknown]
  - Arthritis [Unknown]
  - Weight decreased [Unknown]
  - Oral herpes [Unknown]
  - Alopecia [Unknown]
  - Pain [Unknown]
  - Haemoglobin decreased [Unknown]
  - Mouth ulceration [Recovered/Resolved]
  - Neutropenia [Unknown]
  - Pain in extremity [Unknown]
  - Immunosuppression [Unknown]
  - Dysphagia [Unknown]
  - Pancytopenia [Unknown]
  - Peripheral swelling [Unknown]
  - Platelet count decreased [Unknown]
